FAERS Safety Report 13872057 (Version 1)
Quarter: 2017Q3

REPORT INFORMATION
  Report Type: Spontaneous
  Country: US (occurrence: US)
  Receive Date: 20170816
  Receipt Date: 20170816
  Transmission Date: 20171127
  Serious: No
  Sender: FDA-Public Use
  Company Number: US-ELI_LILLY_AND_COMPANY-US201708003202

PATIENT
  Sex: Female

DRUGS (1)
  1. HUMALOG KWIKPEN [Suspect]
     Active Substance: INSULIN LISPRO
     Indication: BLOOD GLUCOSE INCREASED
     Dosage: UNK UNK, UNKNOWN
     Route: 058

REACTIONS (2)
  - Incorrect drug administration duration [Unknown]
  - Blood glucose increased [Not Recovered/Not Resolved]

NARRATIVE: CASE EVENT DATE: 20170724
